FAERS Safety Report 22204522 (Version 2)
Quarter: 2023Q2

REPORT INFORMATION
  Report Type: Report from Study
  Country: US (occurrence: US)
  Receive Date: 20230413
  Receipt Date: 20230531
  Transmission Date: 20230722
  Serious: Yes (Other)
  Sender: FDA-Public Use
  Company Number: US-JNJFOC-20230418567

PATIENT
  Sex: Female

DRUGS (3)
  1. SPRAVATO [Suspect]
     Active Substance: ESKETAMINE
     Indication: Depression
     Dosage: ^56 MG, 5 TOTAL DOSES^
     Dates: start: 20200810, end: 20200824
  2. SPRAVATO [Suspect]
     Active Substance: ESKETAMINE
     Indication: Schizoaffective disorder
     Dosage: ^84 MG, 49 TOTAL DOSES^
     Dates: start: 20200827, end: 20221208
  3. SPRAVATO [Suspect]
     Active Substance: ESKETAMINE

REACTIONS (2)
  - Cardiac operation [Unknown]
  - Dissociation [Recovered/Resolved]
